FAERS Safety Report 12550499 (Version 2)
Quarter: 2016Q3

REPORT INFORMATION
  Report Type: Spontaneous
  Country: BR (occurrence: BR)
  Receive Date: 20160712
  Receipt Date: 20160729
  Transmission Date: 20161109
  Serious: Yes (Hospitalization, Other)
  Sender: FDA-Public Use
  Company Number: BR-ELI_LILLY_AND_COMPANY-BR201607000153

PATIENT
  Age: 87 Year
  Sex: Male
  Weight: 90 kg

DRUGS (16)
  1. HUMULIN N [Suspect]
     Active Substance: INSULIN HUMAN
     Dosage: 20 IU, EACH MORNING
     Route: 058
  2. HUMULIN N [Suspect]
     Active Substance: INSULIN HUMAN
     Dosage: UNK, EACH EVENING
     Route: 058
  3. AAS [Concomitant]
     Active Substance: ASPIRIN
     Dosage: 100 MG, UNKNOWN
  4. HUMULIN N [Suspect]
     Active Substance: INSULIN HUMAN
     Indication: TYPE 2 DIABETES MELLITUS
     Dosage: 20 IU, EACH MORNING
     Route: 058
     Dates: start: 201203
  5. HUMULIN N [Suspect]
     Active Substance: INSULIN HUMAN
     Dosage: UNK UNK, EACH EVENING
     Route: 058
     Dates: start: 201203
  6. SINVASTATINA [Concomitant]
     Active Substance: SIMVASTATIN
     Dosage: 20 MG, UNKNOWN
  7. CLORTALIDONE [Concomitant]
  8. ALDACTONE [Concomitant]
     Active Substance: SPIRONOLACTONE
     Indication: PRODUCT USED FOR UNKNOWN INDICATION
     Dosage: UNK
     Dates: start: 2009
  9. COMBODART [Concomitant]
     Active Substance: DUTASTERIDE\TAMSULOSIN
  10. FLUOXETINE [Concomitant]
     Active Substance: FLUOXETINE HYDROCHLORIDE
     Dosage: 20 MG, UNKNOWN
  11. FUROSEMIDE. [Suspect]
     Active Substance: FUROSEMIDE
     Indication: PRODUCT USED FOR UNKNOWN INDICATION
     Dosage: UNK, UNKNOWN
     Route: 065
  12. SECOTEX [Suspect]
     Active Substance: TAMSULOSIN
     Indication: PRODUCT USED FOR UNKNOWN INDICATION
     Dosage: UNK, UNKNOWN
     Route: 065
  13. CLORTALIDONA [Concomitant]
     Active Substance: CHLORTHALIDONE
     Dosage: 25 MG, UNKNOWN
  14. METILDOPA [Concomitant]
     Active Substance: METHYLDOPA
     Dosage: 250 MG, UNKNOWN
     Dates: start: 2009
  15. OMEPRAZOL                          /00661201/ [Concomitant]
     Active Substance: OMEPRAZOLE
     Dosage: UNK, UNKNOWN
  16. SINERGEN [Concomitant]
     Dosage: UNK, UNKNOWN

REACTIONS (18)
  - Cerebrovascular accident [Unknown]
  - Ear neoplasm [Recovering/Resolving]
  - Visual impairment [Not Recovered/Not Resolved]
  - Affect lability [Recovering/Resolving]
  - Blood potassium decreased [Unknown]
  - Thrombosis [Recovered/Resolved]
  - Hallucination, visual [Unknown]
  - Body height decreased [Unknown]
  - Renal disorder [Unknown]
  - Nasal neoplasm [Recovering/Resolving]
  - Cataract [Not Recovered/Not Resolved]
  - Memory impairment [Unknown]
  - Impaired healing [Unknown]
  - Paranoia [Recovering/Resolving]
  - Mental impairment [Not Recovered/Not Resolved]
  - Injection site pain [Not Recovered/Not Resolved]
  - Neoplasm [Recovering/Resolving]
  - Hypersexuality [Recovering/Resolving]

NARRATIVE: CASE EVENT DATE: 201506
